FAERS Safety Report 7518341-8 (Version None)
Quarter: 2011Q2

REPORT INFORMATION
  Report Type: 
  Country: None (occurrence: None)
  Receive Date: 20110602
  Receipt Date: 20091107
  Transmission Date: 20111010
  Serious: Yes (Other)
  Sender: FDA-Public Use
  Company Number: US-BAYER-200938974NA

PATIENT
  Age: 64 Year
  Sex: Male
  Weight: 100 kg

DRUGS (8)
  1. NORVASC [Concomitant]
     Dosage: 10 MG / DAILY
     Route: 048
  2. CARDIZEM LA [Concomitant]
     Dosage: 240 MG / DAILY
     Route: 048
  3. TRASYLOL [Suspect]
     Indication: AORTIC VALVE REPLACEMENT
     Dosage: UNK
     Route: 042
     Dates: start: 20030919
  4. COUMADIN [Concomitant]
     Dosage: UNK
     Route: 048
     Dates: start: 20000101
  5. METOPROLOL TARTRATE [Concomitant]
     Dosage: UNK
     Route: 048
     Dates: start: 20010101, end: 20090101
  6. LOTENSIN [Concomitant]
     Dosage: 20 MG / DAILY
     Route: 048
  7. VANCOMYCIN [Concomitant]
     Dosage: UNK
     Route: 042
     Dates: start: 20030910
  8. DIOVAN [Concomitant]
     Dosage: 160 MG / DAILY
     Route: 048

REACTIONS (10)
  - PAIN [None]
  - EMOTIONAL DISTRESS [None]
  - UNEVALUABLE EVENT [None]
  - RENAL FAILURE [None]
  - ANXIETY [None]
  - RENAL IMPAIRMENT [None]
  - RENAL INJURY [None]
  - FEAR [None]
  - INJURY [None]
  - STRESS [None]
